FAERS Safety Report 7588672-4 (Version None)
Quarter: 2011Q3

REPORT INFORMATION
  Report Type: 
  Country: None (occurrence: None)
  Receive Date: 20110705
  Receipt Date: 20110705
  Transmission Date: 20111222
  Serious: Yes (Other)
  Sender: FDA-Public Use
  Company Number: None

PATIENT
  Sex: Female
  Weight: 51.255 kg

DRUGS (1)
  1. CIPROFLOXACIN [Suspect]
     Indication: URINARY TRACT INFECTION
     Dosage: 1
     Route: 048
     Dates: start: 20110413, end: 20110419

REACTIONS (21)
  - URINARY INCONTINENCE [None]
  - DRUG INEFFECTIVE [None]
  - FATIGUE [None]
  - HYPOTONIA [None]
  - SALIVARY HYPERSECRETION [None]
  - NIGHT SWEATS [None]
  - OEDEMA PERIPHERAL [None]
  - TEMPOROMANDIBULAR JOINT SYNDROME [None]
  - INSOMNIA [None]
  - ALOPECIA [None]
  - IRRITABILITY [None]
  - VASODILATATION [None]
  - ANXIETY [None]
  - PANIC ATTACK [None]
  - SOCIAL AVOIDANT BEHAVIOUR [None]
  - ACTIVITIES OF DAILY LIVING IMPAIRED [None]
  - ABASIA [None]
  - DECREASED INTEREST [None]
  - MEMORY IMPAIRMENT [None]
  - ASTHENIA [None]
  - IMPAIRED WORK ABILITY [None]
